FAERS Safety Report 6090983-9 (Version None)
Quarter: 2009Q1

REPORT INFORMATION
  Report Type: 
  Country: None (occurrence: None)
  Receive Date: 20090219
  Receipt Date: 20090219
  Transmission Date: 20090719
  Serious: Yes (Hospitalization)
  Sender: FDA-Public Use
  Company Number: None

PATIENT
  Sex: Female
  Weight: 78.0187 kg

DRUGS (14)
  1. PEMETREXED 950MG LILLY [Suspect]
     Indication: HEAD AND NECK CANCER
     Dosage: 950MG Q2WEEKS IV
     Route: 042
     Dates: start: 20090205
  2. OXALIPLATIN [Suspect]
     Indication: HEAD AND NECK CANCER
     Dosage: 162MG Q2WEEKS IV
     Route: 042
     Dates: start: 20090205
  3. CLINDAMYCIN HCL [Concomitant]
  4. DOCUSATE [Concomitant]
  5. FLUOXETINE [Concomitant]
  6. DEXAMETHASONE [Concomitant]
  7. LORTAB [Concomitant]
  8. LORAZEPAM [Concomitant]
  9. ONDANSETRON [Concomitant]
  10. FOLIC ACID [Concomitant]
  11. PRILOSEC [Concomitant]
  12. OXYCODONE [Concomitant]
  13. PHENERGAN [Concomitant]
  14. PRILOSEC [Concomitant]

REACTIONS (7)
  - ASTHENIA [None]
  - DEHYDRATION [None]
  - DIZZINESS [None]
  - DYSPHAGIA [None]
  - GASTROOESOPHAGEAL REFLUX DISEASE [None]
  - OROPHARYNGEAL PAIN [None]
  - URINARY TRACT INFECTION [None]
